FAERS Safety Report 5217022-3 (Version None)
Quarter: 2007Q1

REPORT INFORMATION
  Report Type: 
  Country: None (occurrence: None)
  Receive Date: 20070119
  Receipt Date: 20070112
  Transmission Date: 20070707
  Serious: Yes (Hospitalization)
  Sender: FDA-Public Use
  Company Number: FRP07000018

PATIENT
  Age: 62 Year
  Sex: Female
  Weight: 80 kg

DRUGS (6)
  1. DIDRONEL [Suspect]
     Dosage: 400 MG, DAILY, ORAL
     Route: 048
  2. PREVISCAN(FLUINDIONE) TABLET, 20MG [Suspect]
     Dosage: 15 MG, DAILY, ORAL
     Route: 048
  3. IDARAC [Suspect]
     Dosage: 200 MG, 4/DAY, ORAL
     Route: 048
  4. VALSARTAN [Suspect]
     Dosage: 30 MG, DAILY, ORAL
     Route: 048
  5. ENDOTELON   /00811401/(VITIS VINIFERA, HERBAL EXTRACT NOS) [Suspect]
     Dosage: 150 MG, 2/DAY, ORAL
     Route: 048
  6. OROCAL /00108001/(CALCIUM CARBONATE) [Suspect]
     Dosage: 1 TABLET, DAILY ORAL
     Route: 048

REACTIONS (2)
  - PHLEBITIS [None]
  - PULMONARY EMBOLISM [None]
